FAERS Safety Report 9158232 (Version 1)
Quarter: 2013Q1

REPORT INFORMATION
  Report Type: Spontaneous
  Country: US (occurrence: US)
  Receive Date: 20130312
  Receipt Date: 20130312
  Transmission Date: 20140127
  Serious: Yes (Other)
  Sender: FDA-Public Use
  Company Number: US-ROCHE-1200791

PATIENT
  Sex: 0

DRUGS (3)
  1. RITUXAN [Suspect]
     Indication: RHEUMATOID ARTHRITIS
     Route: 065
  2. IBUPROFEN [Concomitant]
  3. ZOMIG [Concomitant]

REACTIONS (2)
  - Headache [Unknown]
  - Eye disorder [Unknown]
